FAERS Safety Report 5112536-9 (Version None)
Quarter: 2006Q3

REPORT INFORMATION
  Report Type: 
  Country: None (occurrence: None)
  Receive Date: 20060922
  Receipt Date: 20060918
  Transmission Date: 20061208
  Serious: Yes (Death, Hospitalization, Other)
  Sender: FDA-Public Use
  Company Number: PHMT2006CA01832

PATIENT
  Age: 59 Year
  Sex: Female

DRUGS (3)
  1. SEROQUEL [Concomitant]
  2. CLOZAPINE [Suspect]
     Indication: SCHIZOPHRENIA
     Dosage: 250 MG DAILY
     Route: 048
  3. CLOZAPINE [Suspect]
     Dosage: 200 MG DAILY
     Route: 048
     Dates: end: 20051119

REACTIONS (17)
  - ABDOMINAL DISCOMFORT [None]
  - ABDOMINAL RIGIDITY [None]
  - ASTHENIA [None]
  - BRONCHOPNEUMONIA [None]
  - CONSTIPATION [None]
  - DEHYDRATION [None]
  - DRY MOUTH [None]
  - EXERCISE LACK OF [None]
  - INTESTINAL OBSTRUCTION [None]
  - INTUBATION [None]
  - LARGE INTESTINE PERFORATION [None]
  - LETHARGY [None]
  - LIFE SUPPORT [None]
  - MELAENA [None]
  - PNEUMONIA [None]
  - SEPSIS [None]
  - VOMITING [None]
